FAERS Safety Report 24625219 (Version 1)
Quarter: 2024Q4

REPORT INFORMATION
  Report Type: Spontaneous
  Country: US (occurrence: None)
  Receive Date: 20241115
  Receipt Date: 20241115
  Transmission Date: 20250114
  Serious: Yes (Hospitalization)
  Sender: Public
  Company Number: None

PATIENT
  Age: 77 Year
  Sex: Male

DRUGS (2)
  1. LENALIDOMIDE [Suspect]
     Active Substance: LENALIDOMIDE
     Indication: Plasma cell myeloma
     Dosage: OTHER FREQUENCY : 21DAYSON7DAYSOFF;?
  2. GABAPENTIN [Concomitant]

REACTIONS (3)
  - Plasma cell myeloma [None]
  - Cerebrovascular accident [None]
  - Spinal fracture [None]
